FAERS Safety Report 20425368 (Version 1)
Quarter: 2022Q1

REPORT INFORMATION
  Report Type: Report from Study
  Country: US (occurrence: US)
  Receive Date: 20220204
  Receipt Date: 20220204
  Transmission Date: 20220423
  Serious: No
  Sender: FDA-Public Use
  Company Number: US-EXELIXIS-CABO-21038606

PATIENT
  Sex: Female

DRUGS (2)
  1. CABOMETYX [Suspect]
     Active Substance: CABOZANTINIB S-MALATE
     Indication: Alveolar soft part sarcoma
     Dosage: 20 MG, QD
     Dates: start: 20210224
  2. CABOMETYX [Suspect]
     Active Substance: CABOZANTINIB S-MALATE
     Indication: Malignant connective tissue neoplasm

REACTIONS (8)
  - Weight decreased [Unknown]
  - Decreased appetite [Recovered/Resolved]
  - Chest pain [Not Recovered/Not Resolved]
  - Vomiting [Recovered/Resolved]
  - Retching [Recovering/Resolving]
  - Pruritus [Unknown]
  - Constipation [Recovered/Resolved]
  - Off label use [Unknown]
